FAERS Safety Report 24383611 (Version 1)
Quarter: 2024Q3

REPORT INFORMATION
  Report Type: Spontaneous
  Country: US (occurrence: None)
  Receive Date: 20240930
  Receipt Date: 20240930
  Transmission Date: 20241016
  Serious: Yes (Other)
  Sender: Public
  Company Number: None

PATIENT
  Age: 56 Year
  Sex: Female
  Weight: 101.25 kg

DRUGS (1)
  1. HUMIRA [Suspect]
     Active Substance: ADALIMUMAB
     Indication: Rheumatoid arthritis
     Dosage: 40 MG EVERY 2 WEEKS SUBCUTANEOUS
     Route: 058
     Dates: start: 20240917, end: 20240927

REACTIONS (5)
  - Injection site erythema [None]
  - Injection site pruritus [None]
  - Injection site induration [None]
  - Dyspnoea [None]
  - Pharyngeal swelling [None]

NARRATIVE: CASE EVENT DATE: 20240927
